FAERS Safety Report 7009622-5 (Version None)
Quarter: 2010Q3

REPORT INFORMATION
  Report Type: 
  Country: None (occurrence: None)
  Receive Date: 20100923
  Receipt Date: 20100915
  Transmission Date: 20110219
  Serious: Yes (Hospitalization, Disabling)
  Sender: FDA-Public Use
  Company Number: PHHY2010JP54527

PATIENT
  Age: 78 Year
  Sex: Female

DRUGS (4)
  1. RASILEZ [Suspect]
     Indication: HYPERTENSION
     Dosage: 150 MG DAILY
     Route: 048
  2. MUCODYNE [Concomitant]
     Dosage: UNK
     Route: 048
     Dates: start: 20100409
  3. METHYCOBAL [Concomitant]
     Dosage: 1500 MICROGRAM, UNK
     Route: 048
     Dates: start: 20100419
  4. ACINON [Concomitant]
     Dosage: UNK
     Route: 048
     Dates: start: 20100427

REACTIONS (3)
  - CEREBRAL HAEMORRHAGE [None]
  - HAEMATOCRIT DECREASED [None]
  - HAEMOGLOBIN DECREASED [None]
